FAERS Safety Report 6326156-1 (Version None)
Quarter: 2009Q3

REPORT INFORMATION
  Report Type: 
  Country: None (occurrence: None)
  Receive Date: 20090824
  Receipt Date: 20090812
  Transmission Date: 20100115
  Serious: Yes (Other)
  Sender: FDA-Public Use
  Company Number: BR-PFIZER INC-2009254294

PATIENT
  Age: 41 Year

DRUGS (3)
  1. GEODON [Suspect]
     Indication: STRESS
     Dosage: 40 MG, 2X/DAY
     Route: 048
     Dates: start: 20090729
  2. GEODON [Suspect]
     Indication: NERVOUSNESS
  3. RIVOTRIL [Concomitant]
     Dosage: UNK

REACTIONS (13)
  - ANXIETY [None]
  - DIZZINESS [None]
  - DYSPNOEA [None]
  - DYSSTASIA [None]
  - EYE SWELLING [None]
  - FORMICATION [None]
  - HEADACHE [None]
  - LISTLESS [None]
  - MUSCULAR WEAKNESS [None]
  - SINUSITIS [None]
  - SOMNOLENCE [None]
  - TREMOR [None]
  - VISUAL IMPAIRMENT [None]
